FAERS Safety Report 20180887 (Version 1)
Quarter: 2021Q4

REPORT INFORMATION
  Report Type: Spontaneous
  Country: US (occurrence: None)
  Receive Date: 20211213
  Receipt Date: 20211213
  Transmission Date: 20220304
  Serious: No
  Sender: FDA-Public Use
  Company Number: None

PATIENT
  Sex: Female

DRUGS (1)
  1. AMBRISENTAN [Suspect]
     Active Substance: AMBRISENTAN
     Indication: Lung disorder
     Dosage: FREQUENCY : DAILY;?
     Route: 048
     Dates: start: 20211014

REACTIONS (3)
  - Pain in extremity [None]
  - Peripheral swelling [None]
  - Drug ineffective [None]
